FAERS Safety Report 6338531-X (Version None)
Quarter: 2009Q3

REPORT INFORMATION
  Report Type: 
  Country: None (occurrence: None)
  Receive Date: 20090901
  Receipt Date: 20090824
  Transmission Date: 20100115
  Serious: Yes (Hospitalization)
  Sender: FDA-Public Use
  Company Number: 2009009891

PATIENT
  Age: 15 Year
  Sex: Female
  Weight: 49 kg

DRUGS (1)
  1. PROVIGIL [Suspect]
     Dosage: 5000 MG (50 TABLETS ONCE) ORAL
     Route: 048

REACTIONS (11)
  - ABDOMINAL PAIN [None]
  - DYSKINESIA [None]
  - ELECTROCARDIOGRAM QT PROLONGED [None]
  - EMOTIONAL DISTRESS [None]
  - HEADACHE [None]
  - HEART RATE INCREASED [None]
  - INSOMNIA [None]
  - NAUSEA [None]
  - OVERDOSE [None]
  - SELF-MEDICATION [None]
  - SUICIDE ATTEMPT [None]
